FAERS Safety Report 16649351 (Version 1)
Quarter: 2019Q3

REPORT INFORMATION
  Report Type: Spontaneous
  Country: US (occurrence: US)
  Receive Date: 20190617
  Receipt Date: 20190617
  Transmission Date: 20191004
  Serious: Yes (Other)
  Sender: FDA-Public Use
  Company Number: None

PATIENT
  Age: 68 Year
  Sex: Male
  Weight: 68.04 kg

DRUGS (1)
  1. IMIQUIMOD CREAM 5% [Suspect]
     Active Substance: IMIQUIMOD
     Indication: BASAL CELL CARCINOMA
     Dosage: THIN LAYER 5X WEEKLY FOR 6 WEEKS, TOPICAL
     Route: 061
     Dates: start: 20190402, end: 20190515

REACTIONS (3)
  - Headache [None]
  - Chromaturia [None]
  - Fatigue [None]

NARRATIVE: CASE EVENT DATE: 20190515
